FAERS Safety Report 8468795-8 (Version None)
Quarter: 2012Q2

REPORT INFORMATION
  Report Type: 
  Country: None (occurrence: None)
  Receive Date: 20120621
  Receipt Date: 20120621
  Transmission Date: 20120825
  Serious: Yes (Hospitalization)
  Sender: FDA-Public Use
  Company Number: None

PATIENT
  Sex: Female
  Weight: 68.2 kg

DRUGS (12)
  1. ORENCIA [Suspect]
     Dosage: 750MG LOADING DOSE IV INFUSION
     Route: 042
     Dates: start: 20120509
  2. ESTRADIOL [Concomitant]
  3. ATIVAN [Concomitant]
  4. BIOTIN [Concomitant]
  5. FOLIC ACID [Concomitant]
  6. CELEBREX [Concomitant]
  7. HYDROCODONE [Concomitant]
  8. OREGANO [Concomitant]
  9. LISINOPRIL [Concomitant]
  10. PREDNISONE TAB [Concomitant]
  11. BENADRYL [Concomitant]
  12. ADDERALL 10 [Concomitant]

REACTIONS (4)
  - DYSPNOEA [None]
  - DIARRHOEA [None]
  - INFLUENZA LIKE ILLNESS [None]
  - NONSPECIFIC REACTION [None]
